FAERS Safety Report 7586351-0 (Version None)
Quarter: 2011Q2

REPORT INFORMATION
  Report Type: 
  Country: None (occurrence: None)
  Receive Date: 20110603
  Receipt Date: 20110428
  Transmission Date: 20111010
  Serious: Yes (Hospitalization)
  Sender: FDA-Public Use
  Company Number: 2011SP019852

PATIENT
  Age: 20 Year
  Sex: Female

DRUGS (4)
  1. SAPHRIS [Suspect]
     Indication: PRODUCT USED FOR UNKNOWN INDICATION
     Dosage: 10 MG;BID;SL ; 5 MG;BID;SL
     Route: 060
     Dates: start: 20110101
  2. SAPHRIS [Suspect]
     Indication: PRODUCT USED FOR UNKNOWN INDICATION
     Dosage: 10 MG;BID;SL ; 5 MG;BID;SL
     Route: 060
     Dates: start: 20100101, end: 20110101
  3. LUVOX [Suspect]
     Indication: PRODUCT USED FOR UNKNOWN INDICATION
  4. CONCERTA [Concomitant]

REACTIONS (3)
  - DRUG INTERACTION [None]
  - CONVULSION [None]
  - OCULOGYRIC CRISIS [None]
